FAERS Safety Report 10006459 (Version 1)
Quarter: 2014Q1

REPORT INFORMATION
  Report Type: Spontaneous
  Country: DK (occurrence: DE)
  Receive Date: 20140313
  Receipt Date: 20140313
  Transmission Date: 20141002
  Serious: Yes (Other)
  Sender: FDA-Public Use
  Company Number: DE-FRI-1000064604

PATIENT
  Age: 28 Year
  Sex: Female
  Weight: 47 kg

DRUGS (3)
  1. ESCITALOPRAM [Suspect]
     Indication: DEPRESSION
     Dosage: 10 MG
     Route: 048
  2. AMISULPRID [Suspect]
     Indication: PSYCHOTIC DISORDER
     Dosage: 50 MG
     Route: 048
     Dates: start: 20090722, end: 20100427
  3. MUTAGRIP [Concomitant]
     Indication: INFLUENZA IMMUNISATION
     Route: 030
     Dates: start: 20090910, end: 20090910

REACTIONS (3)
  - Haemorrhage in pregnancy [Unknown]
  - Nausea [Unknown]
  - Pregnancy [Unknown]
